FAERS Safety Report 17916390 (Version 2)
Quarter: 2020Q2

REPORT INFORMATION
  Report Type: Spontaneous
  Country: PL (occurrence: PL)
  Receive Date: 20200619
  Receipt Date: 20200630
  Transmission Date: 20200714
  Serious: Yes (Death, Life-Threatening)
  Sender: FDA-Public Use
  Company Number: PL-PFIZER INC-2020237680

PATIENT
  Age: 76 Year
  Sex: Male

DRUGS (9)
  1. DABIGATRAN [Concomitant]
     Active Substance: DABIGATRAN
     Indication: ATRIAL FIBRILLATION
     Dosage: 220 MG, 1X/DAY
  2. DOBUTAMINE [Suspect]
     Active Substance: DOBUTAMINE HYDROCHLORIDE
     Indication: CARDIAC OUTPUT
     Dosage: 10 UG/KG/MIN
     Route: 041
  3. EPINEPHRINE. [Suspect]
     Active Substance: EPINEPHRINE
     Dosage: 1 ?G/KG/MIN
  4. NORADRENALINE [NOREPINEPHRINE] [Suspect]
     Active Substance: NOREPINEPHRINE
     Indication: CARDIAC OUTPUT
     Dosage: UNK MILLIGRAM
     Route: 041
  5. PROTAMINE SULPHATE [Concomitant]
     Active Substance: PROTAMINE SULFATE
     Dosage: UNK
  6. IDARUCIZUMAB [Concomitant]
     Active Substance: IDARUCIZUMAB
     Dosage: 5 G
     Route: 041
  7. MILRINONE [Suspect]
     Active Substance: MILRINONE
     Indication: CARDIAC OUTPUT
     Dosage: 0.42 UG/KG/MIN
     Route: 041
  8. HEPARIN [Concomitant]
     Active Substance: HEPARIN SODIUM
     Dosage: UNK
  9. EPINEPHRINE. [Suspect]
     Active Substance: EPINEPHRINE
     Indication: CARDIAC OUTPUT
     Dosage: 0.83 UG/KG/MIN
     Route: 041

REACTIONS (3)
  - Cardiogenic shock [Fatal]
  - Drug ineffective [Fatal]
  - Hypotension [Fatal]
